FAERS Safety Report 6973131-X (Version None)
Quarter: 2010Q3

REPORT INFORMATION
  Report Type: 
  Country: None (occurrence: None)
  Receive Date: 20100909
  Receipt Date: 20100901
  Transmission Date: 20110219
  Serious: Yes (Hospitalization, Disabling)
  Sender: FDA-Public Use
  Company Number: HR-ROCHE-674413

PATIENT
  Sex: Male
  Weight: 67.5 kg

DRUGS (19)
  1. METHOXY POLYETHYLENE GLYCOL-EPOETIN BETA [Suspect]
     Route: 058
     Dates: start: 20090608
  2. METHOXY POLYETHYLENE GLYCOL-EPOETIN BETA [Suspect]
     Dosage: LAST DOSE PRIOR TO SAE: 07 DECEMBER 2009
     Route: 058
  3. METHOXY POLYETHYLENE GLYCOL-EPOETIN BETA [Suspect]
     Dosage: LAST DOSE PRIOR TO EVENT: 09 JULY 2010
     Route: 058
  4. METHOXY POLYETHYLENE GLYCOL-EPOETIN BETA [Suspect]
     Dosage: DATE OF LAST DOSE PRIOR TO SAE: 09 AUGUST 2010
     Route: 058
  5. CALCIUM CARBONATE [Concomitant]
     Dates: start: 20080630
  6. CARVEDILOL [Concomitant]
     Dates: start: 20090531
  7. AMLODIPINE [Concomitant]
     Dates: start: 20071005
  8. ISOSORBIDE MONONITRATE [Concomitant]
     Dates: start: 20070730
  9. LISINOPRIL [Concomitant]
     Dates: start: 20071005
  10. PANTOPRAZOLE SODIUM [Concomitant]
     Dates: start: 20090123
  11. CALCITRIOL [Concomitant]
     Dates: start: 20080516
  12. FOLIC ACID [Concomitant]
     Dates: start: 20090814
  13. GLIQUIDONE [Concomitant]
     Dates: start: 20070915
  14. GLIQUIDONE [Concomitant]
     Dates: start: 20091228
  15. LACIDIPINE [Concomitant]
     Dates: start: 20100104
  16. LACIDIPINE [Concomitant]
     Dates: start: 20100830
  17. ACETYLSALICYLIC ACID [Concomitant]
     Dates: start: 20100108
  18. SIMVASTATIN [Concomitant]
     Dates: start: 20100625
  19. FUROSEMIDE [Concomitant]
     Dates: start: 20100101

REACTIONS (5)
  - ARTERIOVENOUS FISTULA THROMBOSIS [None]
  - CAROTID ARTERY STENOSIS [None]
  - CEREBROVASCULAR ACCIDENT [None]
  - FEMORAL ARTERY OCCLUSION [None]
  - PERIPHERAL ARTERIAL OCCLUSIVE DISEASE [None]
